FAERS Safety Report 8126538-1 (Version None)
Quarter: 2012Q1

REPORT INFORMATION
  Report Type: 
  Country: None (occurrence: None)
  Receive Date: 20120210
  Receipt Date: 20120131
  Transmission Date: 20120608
  Serious: Yes (Death, Other)
  Sender: FDA-Public Use
  Company Number: BR-AMGEN-BRASP2012006987

PATIENT
  Age: 68 Year
  Sex: Female

DRUGS (2)
  1. ENBREL [Suspect]
     Indication: RHEUMATOID ARTHRITIS
     Dosage: 25 MG, 2X/WEEK
     Route: 058
     Dates: start: 20090501
  2. OMEPRAZOLE [Concomitant]
     Dosage: UNK

REACTIONS (4)
  - BACK PAIN [None]
  - DYSENTERY [None]
  - PULMONARY EMBOLISM [None]
  - FALL [None]
